FAERS Safety Report 11108475 (Version 2)
Quarter: 2015Q3

REPORT INFORMATION
  Report Type: Spontaneous
  Country: US (occurrence: US)
  Receive Date: 20150513
  Receipt Date: 20150702
  Transmission Date: 20151125
  Serious: No
  Sender: FDA-Public Use
  Company Number: US-009507513-1505USA004659

PATIENT
  Age: 59 Year
  Sex: Male

DRUGS (7)
  1. AMBIEN [Concomitant]
     Active Substance: ZOLPIDEM TARTRATE
  2. ROZEREM [Concomitant]
     Active Substance: RAMELTEON
  3. TRAZODONE HYDROCHLORIDE. [Concomitant]
     Active Substance: TRAZODONE HYDROCHLORIDE
     Route: 048
  4. REMERON [Concomitant]
     Active Substance: MIRTAZAPINE
     Route: 048
  5. BELSOMRA [Suspect]
     Active Substance: SUVOREXANT
     Indication: INSOMNIA
     Dosage: 20 MG, QD (DOSAGE FORM: 20MG, 10MG, 5MG)
     Route: 048
  6. AMITRIPTYLINE HYDROCHLORIDE. [Concomitant]
     Active Substance: AMITRIPTYLINE HYDROCHLORIDE
     Route: 048
  7. LUNESTA [Concomitant]
     Active Substance: ESZOPICLONE

REACTIONS (1)
  - Drug ineffective [Recovered/Resolved]

NARRATIVE: CASE EVENT DATE: 201505
